FAERS Safety Report 10685947 (Version 3)
Quarter: 2015Q1

REPORT INFORMATION
  Report Type: Spontaneous
  Country: US (occurrence: US)
  Receive Date: 20141231
  Receipt Date: 20150213
  Transmission Date: 20150720
  Serious: No
  Sender: FDA-Public Use
  Company Number: US-PFIZER INC-2014357701

PATIENT
  Age: 78 Year
  Sex: Female
  Weight: 109 kg

DRUGS (6)
  1. SIMVASTATIN. [Concomitant]
     Active Substance: SIMVASTATIN
     Indication: BLOOD CHOLESTEROL ABNORMAL
     Dosage: 1 DF, UNK
     Dates: start: 2000
  2. LEVEMIR [Concomitant]
     Active Substance: INSULIN DETEMIR
     Dosage: 5 SHOTS A DAY
     Dates: start: 2010
  3. HUMULIN R [Concomitant]
     Active Substance: INSULIN HUMAN
     Dosage: 5 SHOTS A DAY
     Dates: start: 2010
  4. METFORMIN [Concomitant]
     Active Substance: METFORMIN HYDROCHLORIDE
     Dosage: 5 SHOOTS A DAY
     Dates: start: 2000
  5. INLYTA [Suspect]
     Active Substance: AXITINIB
     Indication: METASTATIC RENAL CELL CARCINOMA
     Dosage: 8 MG, 2X/DAY
     Dates: start: 20121207
  6. ASPIRIN. [Concomitant]
     Active Substance: ASPIRIN
     Dosage: 1 DF, DAILY
     Dates: start: 200001

REACTIONS (4)
  - Diarrhoea [Not Recovered/Not Resolved]
  - Memory impairment [Unknown]
  - Nausea [Not Recovered/Not Resolved]
  - Decreased appetite [Unknown]

NARRATIVE: CASE EVENT DATE: 20121207
